FAERS Safety Report 6618493-8 (Version None)
Quarter: 2010Q1

REPORT INFORMATION
  Report Type: 
  Country: None (occurrence: None)
  Receive Date: 20100308
  Receipt Date: 20100225
  Transmission Date: 20100710
  Serious: Yes (Hospitalization)
  Sender: FDA-Public Use
  Company Number: CH-SANOFI-AVENTIS-2010SA011082

PATIENT
  Age: 47 Year
  Sex: Female

DRUGS (4)
  1. STILNOX [Suspect]
     Indication: DRUG USE FOR UNKNOWN INDICATION
     Dosage: 5 TABLETS TAKEN IN THE MORNING AND 30 TABLETS TAKEN IN THE EVENING.
     Route: 048
     Dates: start: 20100127, end: 20100127
  2. STILNOX [Suspect]
     Indication: SUICIDE ATTEMPT
     Dosage: 5 TABLETS TAKEN IN THE MORNING AND 30 TABLETS TAKEN IN THE EVENING.
     Route: 048
     Dates: start: 20100127, end: 20100127
  3. TEGRETOL [Concomitant]
     Indication: DRUG USE FOR UNKNOWN INDICATION
     Route: 065
  4. TRAZODONE HCL [Concomitant]
     Indication: DRUG USE FOR UNKNOWN INDICATION
     Route: 065

REACTIONS (4)
  - DIZZINESS [None]
  - INTENTIONAL OVERDOSE [None]
  - PSYCHOMOTOR HYPERACTIVITY [None]
  - VOMITING [None]
